FAERS Safety Report 23856405 (Version 2)
Quarter: 2024Q2

REPORT INFORMATION
  Report Type: Spontaneous
  Country: US (occurrence: US)
  Receive Date: 20240515
  Receipt Date: 20240603
  Transmission Date: 20240716
  Serious: No
  Sender: FDA-Public Use
  Company Number: US-JNJFOC-20240509576

PATIENT
  Sex: Female

DRUGS (1)
  1. MENS ROGAINE EXTRA STRENGTH [Suspect]
     Active Substance: MINOXIDIL
     Indication: Alopecia
     Dosage: A CAPFUL TWICE A DAY AND WHEN I GET THE RESULTS I USED IT ONCE A DAY
     Route: 065

REACTIONS (5)
  - Off label use [Unknown]
  - Poor quality product administered [Unknown]
  - Product container issue [Unknown]
  - Suspected counterfeit product [Unknown]
  - Overdose [Unknown]
